FAERS Safety Report 5503197-5 (Version None)
Quarter: 2007Q4

REPORT INFORMATION
  Report Type: 
  Country: None (occurrence: None)
  Receive Date: 20071031
  Receipt Date: 20071023
  Transmission Date: 20080405
  Serious: Yes (Other)
  Sender: FDA-Public Use
  Company Number: FR-AMGEN-US250109

PATIENT
  Age: 52 Year
  Sex: Female

DRUGS (2)
  1. ENBREL [Suspect]
     Indication: DRUG USE FOR UNKNOWN INDICATION
     Dosage: 50 MG LYOPHILIZED (FREQUENCY UNKNOWN)
     Route: 058
     Dates: start: 20060701, end: 20070601
  2. ENBREL [Suspect]
     Dosage: 50 MG PREFILLED SYRINGE (FREQUENCY UNKNOWN)
     Route: 058
     Dates: start: 20070601

REACTIONS (2)
  - HYPERSENSITIVITY [None]
  - OEDEMA [None]
